FAERS Safety Report 23308505 (Version 1)
Quarter: 2023Q4

REPORT INFORMATION
  Report Type: Spontaneous
  Country: US (occurrence: US)
  Receive Date: 20231218
  Receipt Date: 20231218
  Transmission Date: 20240110
  Serious: No
  Sender: FDA-Public Use
  Company Number: US-SA-SAC20231215000314

PATIENT
  Age: 75 Year
  Sex: Female

DRUGS (2)
  1. DUPIXENT [Suspect]
     Active Substance: DUPILUMAB
     Indication: Asthma
     Dosage: 2 DF, 1X
     Route: 058
     Dates: start: 202304, end: 202304
  2. DUPIXENT [Suspect]
     Active Substance: DUPILUMAB
     Indication: Hypersensitivity
     Dosage: 1 DF, QOW
     Route: 058
     Dates: start: 2023

REACTIONS (3)
  - Product use in unapproved indication [Unknown]
  - Incorrect product administration duration [Unknown]
  - Therapeutic response unexpected [Unknown]

NARRATIVE: CASE EVENT DATE: 20230101
